FAERS Safety Report 14593025 (Version 1)
Quarter: 2018Q1

REPORT INFORMATION
  Report Type: Spontaneous
  Country: US (occurrence: US)
  Receive Date: 20180302
  Receipt Date: 20180302
  Transmission Date: 20180509
  Serious: Yes (Hospitalization)
  Sender: FDA-Public Use
  Company Number: US-ASTRAZENECA-2018SE24884

PATIENT
  Sex: Male
  Weight: 126.1 kg

DRUGS (1)
  1. SYMBICORT [Suspect]
     Active Substance: BUDESONIDE\FORMOTEROL FUMARATE DIHYDRATE
     Indication: ASTHMA
     Dosage: 80/4.5 MCG 2 PUFFS, TWICE A DAY
     Route: 055

REACTIONS (6)
  - Foot deformity [Unknown]
  - Blood glucose increased [Unknown]
  - Asthma [Unknown]
  - Weight decreased [Unknown]
  - Stress [Not Recovered/Not Resolved]
  - Exophthalmos [Not Recovered/Not Resolved]
